FAERS Safety Report 8549102-9 (Version None)
Quarter: 2012Q3

REPORT INFORMATION
  Report Type: 
  Country: None (occurrence: None)
  Receive Date: 20120730
  Receipt Date: 20120724
  Transmission Date: 20120928
  Serious: No
  Sender: FDA-Public Use
  Company Number: US-PFIZER INC-2012179220

PATIENT
  Sex: Female

DRUGS (1)
  1. ESTRING [Suspect]
     Indication: ATROPHIC VULVOVAGINITIS
     Dosage: 2 MG, ONCE IN THREE MONTHS
     Route: 067

REACTIONS (1)
  - BREAST TENDERNESS [None]
